FAERS Safety Report 10202689 (Version 2)
Quarter: 2014Q2

REPORT INFORMATION
  Report Type: Spontaneous
  Country: NL (occurrence: NL)
  Receive Date: 20140528
  Receipt Date: 20140528
  Transmission Date: 20141212
  Serious: Yes (Death)
  Sender: FDA-Public Use
  Company Number: NL-ABBVIE-14P-114-1237036-00

PATIENT
  Age: 32 Year
  Sex: Female
  Weight: 44 kg

DRUGS (5)
  1. HUMIRA [Suspect]
     Indication: CROHN^S DISEASE
     Route: 042
     Dates: start: 2011
  2. HUMIRA [Suspect]
     Route: 042
     Dates: start: 201309
  3. MERCAPTOPURINE [Concomitant]
     Indication: CROHN^S DISEASE
     Route: 048
     Dates: start: 20130905, end: 20131127
  4. 6-MP [Concomitant]
     Indication: PRODUCT USED FOR UNKNOWN INDICATION
  5. 6-MP [Concomitant]

REACTIONS (2)
  - T-cell lymphoma [Fatal]
  - Candida sepsis [Fatal]
